FAERS Safety Report 11497502 (Version 1)
Quarter: 2015Q3

REPORT INFORMATION
  Report Type: Spontaneous
  Country: BE (occurrence: BE)
  Receive Date: 20150911
  Receipt Date: 20150911
  Transmission Date: 20151125
  Serious: Yes (Other)
  Sender: FDA-Public Use
  Company Number: BE-JNJFOC-20150903835

PATIENT

DRUGS (2)
  1. INFLIXIMAB, RECOMBINANT [Suspect]
     Active Substance: INFLIXIMAB
     Indication: PSORIASIS
     Dosage: WEEK 14 AND 22 (MAINTAINANCE DOSE )
     Route: 042
  2. INFLIXIMAB, RECOMBINANT [Suspect]
     Active Substance: INFLIXIMAB
     Indication: PSORIASIS
     Dosage: WEEK 0, 2, 6 (INDUCTION DOSE)
     Route: 042

REACTIONS (6)
  - Respiratory disorder [Unknown]
  - Dizziness [Unknown]
  - Laboratory test abnormal [Unknown]
  - Headache [Unknown]
  - Drug specific antibody present [Unknown]
  - Adverse event [Unknown]
